FAERS Safety Report 9006667 (Version 4)
Quarter: 2014Q1

REPORT INFORMATION
  Report Type: Spontaneous
  Country: US (occurrence: US)
  Receive Date: 20130110
  Receipt Date: 20140117
  Transmission Date: 20141002
  Serious: Yes (Hospitalization, Other)
  Sender: FDA-Public Use
  Company Number: US-MERCK-1301USA002307

PATIENT
  Sex: Female
  Weight: 80.73 kg

DRUGS (2)
  1. FOSAMAX [Suspect]
     Indication: OSTEOPOROSIS
     Dosage: 70 MG, QW
     Route: 048
     Dates: end: 2006
  2. FOSAMAX [Suspect]
     Dosage: UNK
     Route: 048
     Dates: start: 1998, end: 2006

REACTIONS (17)
  - Femur fracture [Recovering/Resolving]
  - Open reduction of fracture [Unknown]
  - Knee arthroplasty [Unknown]
  - Cholecystectomy [Unknown]
  - Cystopexy [Unknown]
  - Fatigue [Recovered/Resolved]
  - Haemorrhagic anaemia [Recovered/Resolved]
  - Transfusion [Recovered/Resolved]
  - Hyponatraemia [Recovered/Resolved]
  - Mental status changes [Unknown]
  - Vitamin D deficiency [Unknown]
  - Breast lump removal [Unknown]
  - Atrial fibrillation [Unknown]
  - Urinary tract infection [Recovered/Resolved]
  - Exostosis [Unknown]
  - Osteopenia [Unknown]
  - Arthralgia [Unknown]
